FAERS Safety Report 16328412 (Version 1)
Quarter: 2019Q2

REPORT INFORMATION
  Report Type: Spontaneous
  Country: US (occurrence: US)
  Receive Date: 20190518
  Receipt Date: 20190518
  Transmission Date: 20190711
  Serious: No
  Sender: FDA-Public Use
  Company Number: US-TEVA-2019-US-1049563

PATIENT
  Age: 33 Year
  Sex: Female

DRUGS (12)
  1. OSELTAMIVIR [Suspect]
     Active Substance: OSELTAMIVIR
     Indication: INFLUENZA
     Route: 065
  2. ALBUTEROL. [Suspect]
     Active Substance: ALBUTEROL
     Dosage: CONTINUOUS SALBUTAMOL AT 20 MG/H
     Route: 065
  3. ALBUTEROL. [Suspect]
     Active Substance: ALBUTEROL
     Indication: STATUS ASTHMATICUS
     Route: 065
  4. DUONEB [Suspect]
     Active Substance: ALBUTEROL SULFATE\IPRATROPIUM BROMIDE
     Indication: STATUS ASTHMATICUS
     Route: 065
  5. CEFTRIAXONE. [Suspect]
     Active Substance: CEFTRIAXONE
     Indication: MORAXELLA INFECTION
     Route: 065
  6. PREDNISONE. [Suspect]
     Active Substance: PREDNISONE
     Indication: STATUS ASTHMATICUS
     Dosage: TAPERING DOSES
     Route: 065
  7. METHYLPREDNISOLONE. [Suspect]
     Active Substance: METHYLPREDNISOLONE
     Indication: STATUS ASTHMATICUS
     Dosage: 120 MILLIGRAM DAILY;
     Route: 042
  8. METHYLPREDNISOLONE. [Suspect]
     Active Substance: METHYLPREDNISOLONE
     Route: 042
  9. AZITHROMYCIN ANHYDROUS. [Suspect]
     Active Substance: AZITHROMYCIN ANHYDROUS
     Indication: ANTIBIOTIC THERAPY
     Route: 065
  10. IPRATROPIUM [Suspect]
     Active Substance: IPRATROPIUM
     Indication: STATUS ASTHMATICUS
     Route: 065
  11. VANCOMYCIN [Suspect]
     Active Substance: VANCOMYCIN
     Indication: ANTIBIOTIC THERAPY
     Route: 065
  12. CEFEPIME [Suspect]
     Active Substance: CEFEPIME HYDROCHLORIDE
     Indication: ANTIBIOTIC THERAPY
     Route: 065

REACTIONS (2)
  - Maternal exposure during pregnancy [Unknown]
  - Normal newborn [Unknown]
